FAERS Safety Report 18230457 (Version 2)
Quarter: 2022Q2

REPORT INFORMATION
  Report Type: Spontaneous
  Country: FR (occurrence: FR)
  Receive Date: 20200904
  Receipt Date: 20220527
  Transmission Date: 20220721
  Serious: Yes (Death)
  Sender: FDA-Public Use
  Company Number: None

PATIENT
  Age: 18 Year
  Sex: Male

DRUGS (3)
  1. DIAZEPAM [Suspect]
     Active Substance: DIAZEPAM
     Indication: Product used for unknown indication
     Dosage: 1 DOSAGE FORMS
     Route: 065
     Dates: start: 202005
  2. METHADONE [Suspect]
     Active Substance: METHADONE HYDROCHLORIDE
     Indication: Drug abuse
     Dosage: 1 DOSAGE FORMS
     Route: 065
     Dates: start: 20200524
  3. SKENAN [Suspect]
     Active Substance: MORPHINE SULFATE
     Indication: Drug abuse
     Dosage: 1 DOSAGE FORMS
     Route: 065
     Dates: start: 20200524

REACTIONS (1)
  - Death [Fatal]

NARRATIVE: CASE EVENT DATE: 20200524
